FAERS Safety Report 5597585-9 (Version None)
Quarter: 2008Q1

REPORT INFORMATION
  Report Type: 
  Country: None (occurrence: None)
  Receive Date: 20080121
  Receipt Date: 20080110
  Transmission Date: 20080703
  Serious: Yes (Hospitalization)
  Sender: FDA-Public Use
  Company Number: B0488446A

PATIENT
  Age: 42 Year
  Sex: Male

DRUGS (1)
  1. ARIXTRA [Suspect]
     Dosage: 2.5MG PER DAY
     Route: 058
     Dates: start: 20070712, end: 20070803

REACTIONS (2)
  - MUSCLE HAEMORRHAGE [None]
  - PAIN IN EXTREMITY [None]
